FAERS Safety Report 19467181 (Version 1)
Quarter: 2021Q2

REPORT INFORMATION
  Report Type: Spontaneous
  Country: US (occurrence: US)
  Receive Date: 20210628
  Receipt Date: 20210628
  Transmission Date: 20210717
  Serious: No
  Sender: FDA-Public Use
  Company Number: US-DRREDDYS-SPO/USA/21/0136835

PATIENT
  Age: 37 Year
  Sex: Male

DRUGS (1)
  1. ZENATANE [Suspect]
     Active Substance: ISOTRETINOIN
     Indication: PRODUCT USED FOR UNKNOWN INDICATION
     Dosage: RMA ISSUE DATE: 31/MARCH/2021 12:40:31 PM, 1/APRIL/2021 3:05:12 PM, 17/MAY/2021 11:39:12 AM

REACTIONS (1)
  - Drug intolerance [Unknown]
